FAERS Safety Report 12892828 (Version 2)
Quarter: 2017Q2

REPORT INFORMATION
  Report Type: Report from Study
  Country: SG (occurrence: SG)
  Receive Date: 20161028
  Receipt Date: 20170630
  Transmission Date: 20170830
  Serious: Yes (Hospitalization, Other)
  Sender: FDA-Public Use
  Company Number: SG-PFIZER INC-2016489406

PATIENT
  Age: 68 Year
  Sex: Male

DRUGS (1)
  1. NO SUBJECT DRUG [Suspect]
     Active Substance: UNSPECIFIED INGREDIENT
     Dosage: NO DOSE GIVEN

REACTIONS (1)
  - Superior vena cava occlusion [Recovered/Resolved with Sequelae]

NARRATIVE: CASE EVENT DATE: 20161006
